FAERS Safety Report 5518299-7 (Version None)
Quarter: 2007Q4

REPORT INFORMATION
  Report Type: 
  Country: None (occurrence: None)
  Receive Date: 20071113
  Receipt Date: 20071031
  Transmission Date: 20080405
  Serious: Yes (Hospitalization)
  Sender: FDA-Public Use
  Company Number: SPV1-2007-04797

PATIENT
  Age: 74 Year
  Sex: Male

DRUGS (1)
  1. 405 (LANTHANUM CARBONATE) (405 (LANTHANUM CARBONATE)) CHEWABLE TABLET [Suspect]
     Indication: HYPERPHOSPHATAEMIA
     Dosage: 1500MG DAILY ORAL
     Route: 048
     Dates: start: 20050329

REACTIONS (2)
  - ABDOMINAL PAIN [None]
  - PYREXIA [None]
